FAERS Safety Report 4511727-5 (Version None)
Quarter: 2004Q4

REPORT INFORMATION
  Report Type: 
  Country: None (occurrence: None)
  Receive Date: 20041129
  Receipt Date: 20041115
  Transmission Date: 20050328
  Serious: Yes (Other)
  Sender: FDA-Public Use
  Company Number: 200418825US

PATIENT
  Sex: 0

DRUGS (1)
  1. KETEK [Suspect]
     Indication: SINUSITIS
     Dosage: DOSE: 400 (2 TABLETS) X 5 DAYS
     Route: 048

REACTIONS (1)
  - PANCREATITIS [None]
